FAERS Safety Report 6220652-3 (Version None)
Quarter: 2009Q2

REPORT INFORMATION
  Report Type: 
  Country: None (occurrence: None)
  Receive Date: 20090610
  Receipt Date: 20090602
  Transmission Date: 20091009
  Serious: Yes (Hospitalization)
  Sender: FDA-Public Use
  Company Number: GB-ROCHE-636165

PATIENT
  Sex: Female
  Weight: 93.4 kg

DRUGS (9)
  1. ORLISTAT [Suspect]
     Indication: OBESITY
     Route: 048
     Dates: start: 20090323, end: 20090525
  2. ORLISTAT [Suspect]
     Route: 048
     Dates: start: 20090529
  3. FLECAINIDE ACETATE [Concomitant]
     Route: 048
  4. ATENOLOL [Concomitant]
     Route: 048
  5. ASPIRIN [Concomitant]
     Route: 048
  6. BENDROFLUMETHIAZIDE [Concomitant]
     Dosage: REPORTED AS BENDROFLORAZIDE
     Route: 048
     Dates: end: 20090501
  7. BETAHISTINE [Concomitant]
     Indication: NEOPLASM
     Route: 048
  8. AMITRIPTLINE HYDROCHLORIDE TAB [Concomitant]
     Indication: ANXIETY
     Route: 048
  9. DIAZEPAM [Concomitant]
     Indication: ANXIETY
     Dosage: REPORTED AS TAKEN AS REQUIRED
     Route: 048

REACTIONS (1)
  - CEREBROVASCULAR ACCIDENT [None]
